FAERS Safety Report 11247458 (Version 2)
Quarter: 2015Q4

REPORT INFORMATION
  Report Type: Spontaneous
  Country: US (occurrence: US)
  Receive Date: 20150708
  Receipt Date: 20151204
  Transmission Date: 20160304
  Serious: No
  Sender: FDA-Public Use
  Company Number: US-BAYER-2015-373228

PATIENT
  Age: 81 Year
  Sex: Male
  Weight: 84 kg

DRUGS (1)
  1. OXYTROL FOR WOMEN [Suspect]
     Active Substance: OXYBUTYNIN
     Indication: HYPERTONIC BLADDER
     Dosage: 1 PATCH EVERY 4 DAYS
     Route: 061
     Dates: start: 2015, end: 20150706

REACTIONS (2)
  - Off label use [Unknown]
  - Application site rash [Unknown]

NARRATIVE: CASE EVENT DATE: 20150701
